FAERS Safety Report 12722610 (Version 2)
Quarter: 2017Q1

REPORT INFORMATION
  Report Type: Spontaneous
  Country: ZA (occurrence: ZA)
  Receive Date: 20160907
  Receipt Date: 20170224
  Transmission Date: 20170428
  Serious: Yes (Death, Hospitalization, Other)
  Sender: FDA-Public Use
  Company Number: ZA-ASTRAZENECA-2016SE93952

PATIENT
  Age: 20755 Day
  Sex: Male
  Weight: 80 kg

DRUGS (3)
  1. NEXIAM [Suspect]
     Active Substance: ESOMEPRAZOLE
     Indication: BARRETT^S OESOPHAGUS
     Dosage: 40MG AND STEPPED DOWN TO 20MG
     Route: 048
     Dates: start: 2007, end: 20160825
  2. NEXIAM [Suspect]
     Active Substance: ESOMEPRAZOLE
     Indication: GASTROOESOPHAGEAL REFLUX DISEASE
     Dosage: 40MG AND STEPPED DOWN TO 20MG
     Route: 048
     Dates: start: 2007, end: 20160825
  3. EXFORGE [Concomitant]
     Active Substance: AMLODIPINE BESYLATE\VALSARTAN
     Indication: DEPRESSION

REACTIONS (7)
  - Rib fracture [Unknown]
  - Oesophageal adenocarcinoma stage III [Fatal]
  - Depression [Unknown]
  - Metastases to bone [Unknown]
  - Hiatus hernia [Unknown]
  - Haemorrhoids [Unknown]
  - Hypertension [Unknown]

NARRATIVE: CASE EVENT DATE: 20160705
